FAERS Safety Report 9685587 (Version 3)
Quarter: 2014Q1

REPORT INFORMATION
  Report Type: Spontaneous
  Country: US (occurrence: US)
  Receive Date: 20131113
  Receipt Date: 20140316
  Transmission Date: 20141002
  Serious: Yes (Other)
  Sender: FDA-Public Use
  Company Number: US-BAYER-2013-137732

PATIENT
  Age: 46 Year
  Sex: Female
  Weight: 104 kg

DRUGS (3)
  1. MIRENA [Suspect]
     Indication: MENORRHAGIA
     Dosage: 20 MCG/24HR, CONT
     Route: 015
     Dates: start: 20131024, end: 20131105
  2. MIRENA [Suspect]
     Indication: POLYMENORRHAGIA
  3. IRON [Concomitant]
     Indication: ANAEMIA
     Dosage: 325 MG, ONCE
     Dates: start: 20130916

REACTIONS (3)
  - Drug ineffective [None]
  - Device expulsion [Recovered/Resolved]
  - Adverse event [Recovered/Resolved]
